FAERS Safety Report 5021062-7 (Version None)
Quarter: 2006Q2

REPORT INFORMATION
  Report Type: 
  Country: None (occurrence: None)
  Receive Date: 20060608
  Receipt Date: 20060530
  Transmission Date: 20061013
  Serious: Yes (Hospitalization)
  Sender: FDA-Public Use
  Company Number: JP-JNJFOC-20060503566

PATIENT
  Sex: Female

DRUGS (6)
  1. CRAVIT [Suspect]
     Indication: GASTROENTERITIS
     Route: 048
     Dates: start: 20060206, end: 20060207
  2. LOXOT [Suspect]
     Indication: GASTROENTERITIS
     Route: 048
     Dates: start: 20060206, end: 20060207
  3. TROXSIN [Concomitant]
     Indication: GASTROENTERITIS
     Route: 048
     Dates: start: 20060206, end: 20060207
  4. ZOVIRAX [Concomitant]
     Indication: PYREXIA
     Route: 065
     Dates: start: 20060207
  5. PENTCILLIN [Concomitant]
     Indication: PYREXIA
     Route: 042
     Dates: start: 20060207
  6. DOMPERIN [Concomitant]
     Indication: GASTROENTERITIS
     Route: 048
     Dates: start: 20060206, end: 20060207

REACTIONS (4)
  - CONVULSION [None]
  - LIVER DISORDER [None]
  - LOSS OF CONSCIOUSNESS [None]
  - THROMBOCYTOPENIA [None]
